FAERS Safety Report 11145610 (Version 1)
Quarter: 2015Q2

REPORT INFORMATION
  Report Type: Spontaneous
  Country: US (occurrence: None)
  Receive Date: 20150526
  Receipt Date: 20150526
  Transmission Date: 20150821
  Serious: Yes (Other)
  Sender: FDA-Public Use
  Company Number: US-ZYDUS-008131

PATIENT
  Age: 20 Year
  Sex: Female

DRUGS (2)
  1. BUPROPION (BUPROPION) [Suspect]
     Active Substance: BUPROPION
     Indication: PRODUCT USED FOR UNKNOWN INDICATION
  2. LAMOTRIGINE. [Concomitant]
     Active Substance: LAMOTRIGINE

REACTIONS (5)
  - Therapy change [None]
  - Nuclear magnetic resonance imaging brain abnormal [None]
  - Central nervous system lesion [None]
  - Generalised tonic-clonic seizure [None]
  - Postictal state [None]
